APPROVED DRUG PRODUCT: AMLODIPINE BESYLATE AND VALSARTAN
Active Ingredient: AMLODIPINE BESYLATE; VALSARTAN
Strength: EQ 5MG BASE;320MG
Dosage Form/Route: TABLET;ORAL
Application: A206512 | Product #002 | TE Code: AB
Applicant: AUROBINDO PHARMA LTD
Approved: Apr 22, 2016 | RLD: No | RS: No | Type: RX